FAERS Safety Report 6657992-X (Version None)
Quarter: 2010Q1

REPORT INFORMATION
  Report Type: 
  Country: None (occurrence: None)
  Receive Date: 20100330
  Receipt Date: 20100317
  Transmission Date: 20100710
  Serious: Yes (Other)
  Sender: FDA-Public Use
  Company Number: US-PFIZER INC-2010035340

PATIENT
  Age: 45 Year
  Sex: Female

DRUGS (4)
  1. AZITHROMYCIN [Suspect]
     Indication: BABESIOSIS
     Dosage: 250 MG, 1X/DAY
     Dates: start: 20080522, end: 20080731
  2. AZITHROMYCIN [Suspect]
     Dosage: 250 MG, 1X/DAY
     Dates: start: 20081015
  3. ATOVAQUONE [Suspect]
     Indication: BABESIOSIS
     Dosage: 750 MG, 2X/DAY
     Dates: start: 20080522, end: 20080731
  4. ATOVAQUONE [Suspect]
     Dosage: 750 MG, 2X/DAY
     Dates: start: 20081015

REACTIONS (1)
  - PATHOGEN RESISTANCE [None]
